FAERS Safety Report 16099704 (Version 1)
Quarter: 2019Q2

REPORT INFORMATION
  Report Type: Spontaneous
  Country: US (occurrence: US)
  Receive Date: 20190320
  Receipt Date: 20190320
  Transmission Date: 20190711
  Serious: Yes (Death, Hospitalization)
  Sender: FDA-Public Use
  Company Number: None

PATIENT
  Age: 87 Year
  Sex: Male

DRUGS (1)
  1. CAPECITABINE. [Suspect]
     Active Substance: CAPECITABINE
     Indication: COLON CANCER
     Dosage: ?          OTHER FREQUENCY:TWICE A DAYMON- FR;?
     Route: 048
     Dates: start: 20180508, end: 20180607

REACTIONS (3)
  - Peritonitis [None]
  - Colon cancer [None]
  - Septic shock [None]

NARRATIVE: CASE EVENT DATE: 20180613
